FAERS Safety Report 5878467-1 (Version None)
Quarter: 2008Q3

REPORT INFORMATION
  Report Type: 
  Country: None (occurrence: None)
  Receive Date: 20080910
  Receipt Date: 20080828
  Transmission Date: 20090109
  Serious: Yes (Hospitalization)
  Sender: FDA-Public Use
  Company Number: 2008BM000033

PATIENT
  Age: 40 Year
  Sex: Female
  Weight: 57.6068 kg

DRUGS (16)
  1. 6R-BH4 (SAPROPTERIN DIHYDROCHLORIDE) TABLET, 100MG [Suspect]
     Indication: SICKLE CELL ANAEMIA
     Dosage: 2.5 MG/KG; QD; PO, 5 MG/KG; QD; PO, 10 MG/KG; QD; PO
     Route: 048
     Dates: start: 20071116, end: 20071216
  2. 6R-BH4 (SAPROPTERIN DIHYDROCHLORIDE) TABLET, 100MG [Suspect]
     Indication: SICKLE CELL ANAEMIA
     Dosage: 2.5 MG/KG; QD; PO, 5 MG/KG; QD; PO, 10 MG/KG; QD; PO
     Route: 048
     Dates: start: 20071217, end: 20080118
  3. 6R-BH4 (SAPROPTERIN DIHYDROCHLORIDE) TABLET, 100MG [Suspect]
     Indication: SICKLE CELL ANAEMIA
     Dosage: 2.5 MG/KG; QD; PO, 5 MG/KG; QD; PO, 10 MG/KG; QD; PO
     Route: 048
     Dates: start: 20080119, end: 20080212
  4. 6R-BH4 (SAPROPTERIN DIHYDROCHLORIDE) TABLET, 100MG [Suspect]
     Indication: SICKLE CELL ANAEMIA
     Dosage: 2.5 MG/KG; QD; PO, 5 MG/KG; QD; PO, 10 MG/KG; QD; PO
     Route: 048
     Dates: start: 20080227
  5. 6R-BH4 (SAPROPTERIN DIHYDROCHLORIDE) TABLET, 100MG [Suspect]
  6. LEVAQUIN [Concomitant]
  7. ZOSYN [Concomitant]
  8. PREVACID [Concomitant]
  9. HYDROMORPHONE HCL [Concomitant]
  10. HYDROCHLORIDE [Concomitant]
  11. DIPHENHYDRAMINE HYDROCHLORIDE [Concomitant]
  12. FOLIC ACID [Concomitant]
  13. PERCOCET [Concomitant]
  14. OXYCODONE HCL [Concomitant]
  15. TYLENOL (CAPLET) [Concomitant]
  16. TYLENOL COLD /00020001/ [Concomitant]

REACTIONS (4)
  - CONDITION AGGRAVATED [None]
  - INFLUENZA LIKE ILLNESS [None]
  - REFUSAL OF TREATMENT BY PATIENT [None]
  - SICKLE CELL ANAEMIA WITH CRISIS [None]
